FAERS Safety Report 23999262 (Version 1)
Quarter: 2024Q2

REPORT INFORMATION
  Report Type: Spontaneous
  Country: US (occurrence: US)
  Receive Date: 20240621
  Receipt Date: 20240621
  Transmission Date: 20240717
  Serious: No
  Sender: FDA-Public Use
  Company Number: HIKM2401878

PATIENT

DRUGS (2)
  1. FLUTICASONE PROPIONATE [Suspect]
     Active Substance: FLUTICASONE PROPIONATE
     Dosage: ONE SPRAY (50 MCG) IN EACH NOSTRIL, SINGLE
     Route: 045
     Dates: start: 20240315, end: 20240315
  2. FLUTICASONE PROPIONATE [Suspect]
     Active Substance: FLUTICASONE PROPIONATE
     Indication: Product used for unknown indication
     Dosage: TWO SPRAYS (100 MCG) IN EACH NOSTRIL, SINGLE
     Route: 045
     Dates: start: 20240314, end: 20240314

REACTIONS (2)
  - Rhinorrhoea [Unknown]
  - Underdose [Unknown]

NARRATIVE: CASE EVENT DATE: 20240315
